FAERS Safety Report 5446984-4 (Version None)
Quarter: 2007Q3

REPORT INFORMATION
  Report Type: 
  Country: None (occurrence: None)
  Receive Date: 20070803
  Receipt Date: 20070510
  Transmission Date: 20080115
  Serious: Yes (Other)
  Sender: FDA-Public Use
  Company Number: US-JNJFOC-20070502751

PATIENT
  Sex: Female

DRUGS (1)
  1. TYLENOL (CAPLET) [Suspect]
     Indication: INTENTIONAL DRUG MISUSE
     Dosage: 10000 MG, 1 IN 1 TOTAL;
     Dates: start: 20070509, end: 20070509

REACTIONS (3)
  - ABDOMINAL PAIN [None]
  - OVERDOSE [None]
  - VOMITING [None]
